FAERS Safety Report 13638651 (Version 1)
Quarter: 2017Q2

REPORT INFORMATION
  Report Type: Report from Study
  Country: US (occurrence: US)
  Receive Date: 20170609
  Receipt Date: 20170609
  Transmission Date: 20170830
  Serious: No
  Sender: FDA-Public Use
  Company Number: GXBR2017US001761

PATIENT
  Age: 14 Year
  Sex: Female
  Weight: 30 kg

DRUGS (4)
  1. OMNITROPE [Suspect]
     Active Substance: SOMATROPIN
     Indication: BODY HEIGHT BELOW NORMAL
     Dosage: 0.16 ML, QD
     Route: 058
     Dates: start: 20170510
  2. GUANFACINE. [Concomitant]
     Active Substance: GUANFACINE
     Dosage: UNK DF, UNK
  3. VYVANSE [Concomitant]
     Active Substance: LISDEXAMFETAMINE DIMESYLATE
     Dosage: UNK DF, UNK
  4. MELATONIN [Concomitant]
     Active Substance: MELATONIN
     Dosage: UNK DF, UNK

REACTIONS (3)
  - Sleep terror [Not Recovered/Not Resolved]
  - Insomnia [Not Recovered/Not Resolved]
  - Fat tissue decreased [Not Recovered/Not Resolved]

NARRATIVE: CASE EVENT DATE: 20170510
